FAERS Safety Report 5930460-6 (Version None)
Quarter: 2008Q4

REPORT INFORMATION
  Report Type: 
  Country: None (occurrence: None)
  Receive Date: 20081022
  Receipt Date: 20081014
  Transmission Date: 20090506
  Serious: Yes (Hospitalization)
  Sender: FDA-Public Use
  Company Number: 035398

PATIENT
  Age: 66 Year
  Sex: Female

DRUGS (4)
  1. DEXTROAMPHETAMINE SULFATE(DEXTROAMPHETAMNE SULFATE) TABLET, 10MG [Suspect]
     Indication: ATTENTION DEFICIT/HYPERACTIVITY DISORDER
     Dosage: 10 MG, 2-3 TIMES DAILY, ORAL
     Route: 048
  2. NORCO [Concomitant]
  3. THYROID TAB [Concomitant]
  4. NEURONTIN [Concomitant]

REACTIONS (4)
  - ANOREXIA [None]
  - DRUG INEFFECTIVE [None]
  - HYPERSOMNIA [None]
  - WEIGHT DECREASED [None]
